FAERS Safety Report 6719482-5 (Version None)
Quarter: 2010Q2

REPORT INFORMATION
  Report Type: 
  Country: None (occurrence: None)
  Receive Date: 20100511
  Receipt Date: 20100406
  Transmission Date: 20101027
  Serious: Yes (Hospitalization)
  Sender: FDA-Public Use
  Company Number: IL-ROCHE-695606

PATIENT
  Age: 11 Year
  Sex: Male
  Weight: 22 kg

DRUGS (5)
  1. TAMIFLU [Suspect]
     Indication: H1N1 INFLUENZA
     Route: 065
     Dates: start: 20090901
  2. AMOXICILLIN AND CLAVULANATE POTASSIUM [Concomitant]
     Dosage: DRUG: AMOXICILLIN-CLAVULANATE
     Route: 042
  3. PIPERACILLIN AND TAZOBACTAM [Concomitant]
  4. AMIKACIN [Concomitant]
  5. VANCOMYCIN [Concomitant]

REACTIONS (2)
  - PATHOGEN RESISTANCE [None]
  - PNEUMONIA STAPHYLOCOCCAL [None]
